FAERS Safety Report 6178090-8 (Version None)
Quarter: 2009Q2

REPORT INFORMATION
  Report Type: 
  Country: None (occurrence: None)
  Receive Date: 20090504
  Receipt Date: 20090422
  Transmission Date: 20091009
  Serious: Yes (Death)
  Sender: FDA-Public Use
  Company Number: MX-PFIZER INC-2009202523

PATIENT

DRUGS (1)
  1. LYRICA [Suspect]
     Dosage: UNKNOWN

REACTIONS (1)
  - RHABDOMYOLYSIS [None]
